FAERS Safety Report 6721722-3 (Version None)
Quarter: 2010Q2

REPORT INFORMATION
  Report Type: 
  Country: None (occurrence: None)
  Receive Date: 20100510
  Receipt Date: 20100427
  Transmission Date: 20101027
  Serious: Yes (Hospitalization)
  Sender: FDA-Public Use
  Company Number: US-000127

PATIENT
  Sex: Female
  Weight: 91.4905 kg

DRUGS (2)
  1. KUVAN [Suspect]
     Indication: PHENYLKETONURIA
     Dosage: (1800 MG QD ORAL0
     Route: 048
     Dates: start: 20100423, end: 20100426
  2. OTHER ANTIHYPERTENSIVES [Concomitant]

REACTIONS (2)
  - ANXIETY [None]
  - FATIGUE [None]
